FAERS Safety Report 4805482-9 (Version None)
Quarter: 2005Q4

REPORT INFORMATION
  Report Type: 
  Country: None (occurrence: None)
  Receive Date: 20051018
  Receipt Date: 20051003
  Transmission Date: 20060501
  Serious: Yes (Hospitalization)
  Sender: FDA-Public Use
  Company Number: 200510IM000579

PATIENT
  Age: 42 Year
  Sex: Male

DRUGS (3)
  1. A643_INTERFERON ALFACON-1 [Suspect]
     Indication: HEPATITIS C
     Dosage: 18 MIU, TIW, SUBCUTANEOUS
     Route: 058
     Dates: start: 20031112, end: 20041029
  2. LOXONIN [Concomitant]
  3. SELBEX [Concomitant]

REACTIONS (7)
  - ALANINE AMINOTRANSFERASE INCREASED [None]
  - ASPARTATE AMINOTRANSFERASE INCREASED [None]
  - HEADACHE [None]
  - LIVER DISORDER [None]
  - PLATELET COUNT DECREASED [None]
  - PYREXIA [None]
  - WHITE BLOOD CELL COUNT DECREASED [None]
